FAERS Safety Report 5386887-7 (Version None)
Quarter: 2007Q3

REPORT INFORMATION
  Report Type: 
  Country: None (occurrence: None)
  Receive Date: 20070713
  Receipt Date: 20070702
  Transmission Date: 20080115
  Serious: Yes (Hospitalization)
  Sender: FDA-Public Use
  Company Number: US-SHR-US-2007-017095

PATIENT
  Age: 29 Year
  Sex: Female
  Weight: 62.132 kg

DRUGS (3)
  1. BETASERON [Suspect]
     Indication: RELAPSING-REMITTING MULTIPLE SCLEROSIS
     Dosage: 8 MIU, EVERY 2D
     Route: 058
     Dates: start: 20040913
  2. ANTIBIOTICS [Suspect]
     Indication: INJECTION SITE CELLULITIS
     Dates: start: 20070415
  3. TRINESSA [Concomitant]
     Dosage: 1 UNK, 1X/DAY
     Route: 048
     Dates: start: 19960901

REACTIONS (6)
  - ABASIA [None]
  - ADVERSE DRUG REACTION [None]
  - INJECTION SITE ABSCESS [None]
  - INJECTION SITE CELLULITIS [None]
  - INJECTION SITE PAIN [None]
  - MYOSITIS [None]
